FAERS Safety Report 21387119 (Version 2)
Quarter: 2022Q4

REPORT INFORMATION
  Report Type: Spontaneous
  Country: US (occurrence: US)
  Receive Date: 20220928
  Receipt Date: 20221003
  Transmission Date: 20230112
  Serious: Yes (Other)
  Sender: FDA-Public Use
  Company Number: US-MLMSERVICE-20220919-3806005-1

PATIENT
  Age: 63 Year
  Sex: Female

DRUGS (12)
  1. OXALIPLATIN [Suspect]
     Active Substance: OXALIPLATIN
     Indication: Rectal cancer
     Dosage: UNK
  2. OXALIPLATIN [Suspect]
     Active Substance: OXALIPLATIN
     Indication: Anal squamous cell carcinoma
  3. OXALIPLATIN [Suspect]
     Active Substance: OXALIPLATIN
     Indication: Metastases to lung
  4. LEUCOVORIN [Suspect]
     Active Substance: LEUCOVORIN
     Indication: Anal squamous cell carcinoma
     Dosage: UNK
  5. LEUCOVORIN [Suspect]
     Active Substance: LEUCOVORIN
     Indication: Rectal cancer
  6. LEUCOVORIN [Suspect]
     Active Substance: LEUCOVORIN
     Indication: Metastases to lung
  7. FLUOROURACIL [Suspect]
     Active Substance: FLUOROURACIL
     Indication: Anal squamous cell carcinoma
     Dosage: UNK
  8. FLUOROURACIL [Suspect]
     Active Substance: FLUOROURACIL
     Indication: Metastases to lung
  9. FLUOROURACIL [Suspect]
     Active Substance: FLUOROURACIL
     Indication: Rectal cancer
  10. PEMBROLIZUMAB [Concomitant]
     Active Substance: PEMBROLIZUMAB
     Indication: Metastases to lung
  11. PEMBROLIZUMAB [Concomitant]
     Active Substance: PEMBROLIZUMAB
     Indication: Anal squamous cell carcinoma
  12. PEMBROLIZUMAB [Concomitant]
     Active Substance: PEMBROLIZUMAB
     Indication: Rectal cancer

REACTIONS (5)
  - Failure to thrive [Unknown]
  - Neuropathy peripheral [Recovering/Resolving]
  - Nausea [Unknown]
  - Vomiting [Unknown]
  - Fatigue [Unknown]
